FAERS Safety Report 7111286-7 (Version None)
Quarter: 2010Q4

REPORT INFORMATION
  Report Type: 
  Country: None (occurrence: None)
  Receive Date: 20101118
  Receipt Date: 20101109
  Transmission Date: 20110411
  Serious: Yes (Other)
  Sender: FDA-Public Use
  Company Number: CA-JNJFOC-20101104275

PATIENT
  Sex: Male
  Weight: 55 kg

DRUGS (11)
  1. REMICADE [Suspect]
     Indication: RHEUMATOID ARTHRITIS
     Route: 042
  2. PREDNISONE [Concomitant]
  3. FERROUS SULFATE TAB [Concomitant]
  4. PRILOSEC [Concomitant]
  5. NOVO-SPIROZINE [Concomitant]
     Route: 048
  6. ACTONEL [Concomitant]
  7. CALCIUM [Concomitant]
  8. VITAMIN D [Concomitant]
  9. ASCORBIC ACID [Concomitant]
     Route: 048
  10. OXAZEPAM [Concomitant]
  11. MINITRANS [Concomitant]

REACTIONS (1)
  - WOUND SECRETION [None]
